FAERS Safety Report 9682252 (Version 1)
Quarter: 2013Q4

REPORT INFORMATION
  Report Type: Spontaneous
  Country: FR (occurrence: FR)
  Receive Date: 20131112
  Receipt Date: 20131112
  Transmission Date: 20140711
  Serious: Yes (Hospitalization)
  Sender: FDA-Public Use
  Company Number: FR-PFIZER INC-2013314552

PATIENT
  Age: 61 Year
  Sex: Male

DRUGS (2)
  1. ARACYTINE [Suspect]
     Indication: ACUTE MYELOID LEUKAEMIA
     Dosage: 5672 MG, UNK
     Route: 041
     Dates: start: 20130925, end: 20130925
  2. ARACYTINE [Suspect]
     Dosage: 5672 MG, UNK
     Route: 041
     Dates: start: 20130927, end: 20130927

REACTIONS (1)
  - Encephalitis [Recovered/Resolved]
